FAERS Safety Report 6389883-6 (Version None)
Quarter: 2009Q4

REPORT INFORMATION
  Report Type: 
  Country: None (occurrence: None)
  Receive Date: 20091006
  Receipt Date: 20090128
  Transmission Date: 20100525
  Serious: No
  Sender: FDA-Public Use
  Company Number: US-BRISTOL-MYERS SQUIBB COMPANY-14486450

PATIENT
  Age: 86 Year
  Sex: Female
  Weight: 48 kg

DRUGS (3)
  1. AVAPRO [Suspect]
     Indication: HYPERTENSION
  2. HYDROCHLOROTHIAZIDE [Concomitant]
  3. FOSAMAX [Concomitant]

REACTIONS (1)
  - ALOPECIA [None]
